FAERS Safety Report 9214617 (Version 1)
Quarter: 2013Q2

REPORT INFORMATION
  Report Type: Spontaneous
  Country: US (occurrence: US)
  Receive Date: 20130405
  Receipt Date: 20130405
  Transmission Date: 20140414
  Serious: No
  Sender: FDA-Public Use
  Company Number: US-009507513-1303USA013771

PATIENT
  Age: 84 Year
  Sex: Male

DRUGS (9)
  1. SINEMET [Suspect]
     Indication: PARKINSON^S DISEASE
     Dosage: 25/100 MG
     Route: 048
  2. SERTRALINE HYDROCHLORIDE [Concomitant]
     Indication: DEPRESSION
     Dosage: 50 MG, QD
     Dates: start: 200809
  3. RISPERIDONE [Concomitant]
     Indication: DEPRESSION
     Dosage: 1 MG, BID
  4. LAMOTRIGINE [Concomitant]
  5. HYDROCHLOROTHIAZIDE [Concomitant]
     Route: 048
  6. LISINOPRIL [Concomitant]
     Route: 048
  7. ATORVASTATIN [Concomitant]
  8. IPRATROPIUM BROMIDE [Concomitant]
  9. FLUTICASONE [Concomitant]

REACTIONS (2)
  - Fatigue [Unknown]
  - Somnolence [Unknown]
